FAERS Safety Report 7526207-2 (Version None)
Quarter: 2011Q2

REPORT INFORMATION
  Report Type: 
  Country: None (occurrence: None)
  Receive Date: 20110606
  Receipt Date: 20110110
  Transmission Date: 20111010
  Serious: No
  Sender: FDA-Public Use
  Company Number: US-BRISTOL-MYERS SQUIBB COMPANY-15441975

PATIENT
  Age: 54 Year
  Sex: Male
  Weight: 71 kg

DRUGS (1)
  1. SUSTIVA [Suspect]
     Dosage: PRESCRIBED DOSE OF SUSTIVA IS 1200(12HRS PERIOD)AND 600MG(24HRS PERIOD).

REACTIONS (1)
  - ACCIDENTAL OVERDOSE [None]
